FAERS Safety Report 10788741 (Version 8)
Quarter: 2017Q1

REPORT INFORMATION
  Report Type: Spontaneous
  Country: US (occurrence: US)
  Receive Date: 20150212
  Receipt Date: 20170316
  Transmission Date: 20170428
  Serious: Yes (Hospitalization, Other)
  Sender: FDA-Public Use
  Company Number: US-ABBVIE-15P-163-1343094-00

PATIENT
  Sex: Female

DRUGS (2)
  1. CREON [Suspect]
     Active Substance: PANCRELIPASE AMYLASE\PANCRELIPASE LIPASE\PANCRELIPASE PROTEASE
     Indication: PANCREATIC INSUFFICIENCY
     Dosage: 1 CAPSULE TWO HOURS AFTER EACH MEAL
     Route: 048
  2. INSULIN [Concomitant]
     Active Substance: INSULIN NOS
     Indication: PANCREATECTOMY
     Dosage: UP TO 185 UNITS/DAILY

REACTIONS (7)
  - Respiratory distress [Unknown]
  - Respiratory failure [Unknown]
  - Alopecia [Unknown]
  - Vitamin D decreased [Unknown]
  - Abdominal operation [Unknown]
  - Thyroid function test abnormal [Unknown]
  - Stress [Unknown]

NARRATIVE: CASE EVENT DATE: 201501
